FAERS Safety Report 5984374-6 (Version None)
Quarter: 2008Q4

REPORT INFORMATION
  Report Type: 
  Country: None (occurrence: None)
  Receive Date: 20081208
  Receipt Date: 20081202
  Transmission Date: 20090506
  Serious: Yes (Death, Hospitalization, Other)
  Sender: FDA-Public Use
  Company Number: PHHY2008DE20240

PATIENT
  Sex: Male
  Weight: 58 kg

DRUGS (15)
  1. RASILEZ [Suspect]
     Indication: HYPERTENSION
     Dosage: 150 MG/DAY
     Dates: start: 20071220, end: 20080901
  2. ANTIHYPERTENSIVE DRUGS [Suspect]
     Indication: HYPERTENSION
  3. CALCITRIOL [Concomitant]
  4. ASS ^CT-ARZNEIMITTEL^ [Concomitant]
     Dosage: 1 DF, QD
  5. LONOTEN [Concomitant]
     Dosage: 1 DF, BID
  6. METOHEXAL [Concomitant]
     Indication: HYPERTENSION
     Dosage: 2 DF, BID
  7. AMLODIPIN ^ORIFARM^ [Concomitant]
     Indication: HYPERTENSION
     Dosage: 3 DF / DAY
  8. MOXONIDINE [Concomitant]
     Indication: HYPERTENSION
     Dosage: 3 DF/DAY
  9. TORSEMIDE [Concomitant]
     Dosage: 1 DF, BID
  10. RAMIPRIL [Concomitant]
     Indication: HYPERTENSION
     Dosage: 3 DF/DAY
  11. CALCIUM ACETATE [Concomitant]
     Dosage: 1 DF, TID
  12. CAPTOPRIL [Concomitant]
  13. ERYPO [Concomitant]
     Dosage: QW3
     Route: 058
  14. FERRLECIT                               /GFR/ [Concomitant]
     Dosage: QW3
  15. EINSALPHA [Concomitant]
     Dosage: 1 DF, QW3

REACTIONS (26)
  - BLOOD CREATININE INCREASED [None]
  - BRADYCARDIA [None]
  - C-REACTIVE PROTEIN INCREASED [None]
  - CARDIAC ARREST [None]
  - CHEYNE-STOKES RESPIRATION [None]
  - CLONIC CONVULSION [None]
  - CONVULSION [None]
  - DYSPNOEA [None]
  - ENDOTRACHEAL INTUBATION [None]
  - EYE MOVEMENT DISORDER [None]
  - HYPERKALAEMIA [None]
  - HYPERKINESIA [None]
  - HYPERTENSIVE CRISIS [None]
  - HYPERTENSIVE ENCEPHALOPATHY [None]
  - HYPOGLYCAEMIA [None]
  - LOSS OF CONSCIOUSNESS [None]
  - METABOLIC ACIDOSIS [None]
  - MYOCLONIC EPILEPSY [None]
  - PULMONARY CONGESTION [None]
  - PURULENCE [None]
  - RENAL FAILURE CHRONIC [None]
  - RESUSCITATION [None]
  - SHOCK [None]
  - STATUS EPILEPTICUS [None]
  - TRACHEOBRONCHITIS [None]
  - TROPONIN INCREASED [None]
